FAERS Safety Report 5744812-0 (Version None)
Quarter: 2008Q2

REPORT INFORMATION
  Report Type: 
  Country: None (occurrence: None)
  Receive Date: 20080516
  Receipt Date: 20080505
  Transmission Date: 20081010
  Serious: Yes (Other)
  Sender: FDA-Public Use
  Company Number: 234212J08USA

PATIENT
  Age: 57 Year
  Sex: Female

DRUGS (3)
  1. REBIF [Suspect]
     Indication: MULTIPLE SCLEROSIS
     Dosage: 44 MCG, 3 IN 1 WEEKS, SUBCUTANEOUS
     Route: 058
     Dates: start: 20030731
  2. MILK THISTLE (VITAMINS) [Concomitant]
  3. ANTIBIOTIC (ANTIBACTERIALS FOR SYSTEMIC USE) [Concomitant]

REACTIONS (2)
  - DIABETES MELLITUS [None]
  - GASTRIC INFECTION [None]
